FAERS Safety Report 26000400 (Version 1)
Quarter: 2025Q4

REPORT INFORMATION
  Report Type: Spontaneous
  Country: US (occurrence: US)
  Receive Date: 20251105
  Receipt Date: 20251105
  Transmission Date: 20260118
  Serious: No
  Sender: ANI
  Company Number: US-ANIPHARMA-2025-US-037007

PATIENT
  Age: 43 Year
  Sex: Female
  Weight: 63.5 kg

DRUGS (2)
  1. CORTICOTROPIN [Suspect]
     Active Substance: CORTICOTROPIN
     Indication: Multiple sclerosis
     Dosage: 1ML ONCE DAILY SC
     Route: 058
     Dates: start: 20250723
  2. UNSPECIFIED INGREDIENT [Concomitant]
     Active Substance: UNSPECIFIED INGREDIENT

REACTIONS (6)
  - Injection site pruritus [Recovered/Resolved]
  - Peripheral swelling [Recovering/Resolving]
  - Abdominal pain upper [Recovered/Resolved]
  - Eyelid ptosis [Recovered/Resolved]
  - Injection site erythema [Recovered/Resolved]
  - Somnolence [Unknown]

NARRATIVE: CASE EVENT DATE: 20250723
